FAERS Safety Report 9365884 (Version 2)
Quarter: 2013Q3

REPORT INFORMATION
  Report Type: Report from Study
  Country: JP (occurrence: JP)
  Receive Date: 20130625
  Receipt Date: 20130710
  Transmission Date: 20140515
  Serious: Yes (Hospitalization)
  Sender: FDA-Public Use
  Company Number: JP-ROCHE-1237692

PATIENT
  Age: 71 Year
  Sex: Female
  Weight: 72.35 kg

DRUGS (14)
  1. TRASTUZUMAB [Suspect]
     Indication: HER-2 POSITIVE BREAST CANCER
     Dosage: LOADING DOSE AS PER PROTOCOL. FORM ALSO REPORTED AS VIAL.
     Route: 042
     Dates: start: 20120619, end: 20120619
  2. TRASTUZUMAB [Suspect]
     Dosage: START DATE OF MAINTENANCE DOSE ESTIMATED AS PER FREQUENCY AND PROTOCOL. THE LAST DOSE PRIOR TO THE E
     Route: 042
     Dates: start: 20120710
  3. DOCETAXEL [Suspect]
     Indication: HER-2 POSITIVE BREAST CANCER
     Dosage: THE LAST DOSE PRIOR TO THE EVENT WAS ON 12/OCT/2012. FORM ALSO REPORTED AS VIAL.
     Route: 042
     Dates: start: 20120619, end: 20121012
  4. CARBOPLATIN [Suspect]
     Indication: HER-2 POSITIVE BREAST CANCER
     Dosage: THE LAST DOSE PRIOR TO THE EVENT WAS ON 12/OCT/2012. FORM ALSO REPORTED AS VIAL.
     Route: 042
     Dates: start: 20120619, end: 20121012
  5. SENNOSIDE [Concomitant]
     Route: 065
     Dates: start: 20120706
  6. KALLIDINOGENASE [Concomitant]
     Route: 065
     Dates: start: 20121031
  7. MECOBALAMIN [Concomitant]
     Route: 065
     Dates: start: 20121031
  8. MAGNESIUM OXIDE [Concomitant]
     Route: 065
     Dates: start: 20120809
  9. ZOLPIDEM [Concomitant]
     Route: 065
     Dates: start: 20120706
  10. ADENOSINE TRIPHOSPHATE DISODIUM [Concomitant]
     Route: 065
     Dates: start: 20121113
  11. SODIUM HYALURONATE [Concomitant]
     Route: 065
     Dates: start: 20130612
  12. REBAMIPIDE [Concomitant]
     Route: 065
     Dates: start: 20130612
  13. PERTUZUMAB [Suspect]
     Indication: HER-2 POSITIVE BREAST CANCER
     Dosage: LOADING DOSE AS PER PROTOCOL. FORM ALSO REPORTED AS VIAL.
     Route: 042
     Dates: start: 20120619, end: 20120619
  14. PERTUZUMAB [Suspect]
     Dosage: START DATE OF MAINTENANCE DOSE ESTIMATED AS PER FREQUENCY AND PROTOCOL. THE LAST DOSE PRIOR TO THE E
     Route: 042
     Dates: start: 20120710

REACTIONS (1)
  - Varicose vein [Recovered/Resolved]
